FAERS Safety Report 14630137 (Version 3)
Quarter: 2018Q1

REPORT INFORMATION
  Report Type: Spontaneous
  Country: US (occurrence: US)
  Receive Date: 20180313
  Receipt Date: 20180327
  Transmission Date: 20180509
  Serious: No
  Sender: FDA-Public Use
  Company Number: US-PFIZER INC-2018100983

PATIENT
  Age: 79 Year
  Sex: Female

DRUGS (6)
  1. CELECOXIB. [Suspect]
     Active Substance: CELECOXIB
     Indication: CERVICAL SPINAL STENOSIS
  2. CELECOXIB. [Suspect]
     Active Substance: CELECOXIB
     Indication: BACK PAIN
  3. CELECOXIB. [Suspect]
     Active Substance: CELECOXIB
     Indication: PAIN
  4. SYNTHROID [Concomitant]
     Active Substance: LEVOTHYROXINE SODIUM
     Dosage: UNK
     Dates: start: 1975
  5. CELECOXIB. [Suspect]
     Active Substance: CELECOXIB
     Indication: OSTEOARTHRITIS
     Dosage: 100 MG, 2X/DAY
     Dates: start: 20180124, end: 20180312
  6. PREMARIN [Concomitant]
     Active Substance: ESTROGENS, CONJUGATED
     Dosage: UNK
     Dates: start: 197607

REACTIONS (1)
  - Drug ineffective [Not Recovered/Not Resolved]
